FAERS Safety Report 13492314 (Version 2)
Quarter: 2017Q2

REPORT INFORMATION
  Report Type: Spontaneous
  Country: US (occurrence: US)
  Receive Date: 20170427
  Receipt Date: 20170628
  Transmission Date: 20170830
  Serious: No
  Sender: FDA-Public Use
  Company Number: US-PFIZER INC-2017182201

PATIENT
  Age: 66 Year
  Sex: Male

DRUGS (2)
  1. INLYTA [Suspect]
     Active Substance: AXITINIB
     Indication: RENAL CANCER
     Dosage: 2 MG, 2X/DAY
     Route: 048
     Dates: start: 20160603
  2. INLYTA [Suspect]
     Active Substance: AXITINIB
     Indication: CANCER PAIN
     Dosage: 3 MG, 2X/DAY
     Route: 048

REACTIONS (3)
  - Decreased appetite [Unknown]
  - Dysphonia [Unknown]
  - Nausea [Unknown]

NARRATIVE: CASE EVENT DATE: 20170301
